FAERS Safety Report 25413045 (Version 1)
Quarter: 2025Q2

REPORT INFORMATION
  Report Type: Spontaneous
  Country: GB (occurrence: GB)
  Receive Date: 20250609
  Receipt Date: 20250609
  Transmission Date: 20250716
  Serious: Yes (Other)
  Sender: PFIZER
  Company Number: None

PATIENT
  Age: 56 Year

DRUGS (1)
  1. METHOTREXATE SODIUM [Suspect]
     Active Substance: METHOTREXATE SODIUM
     Dosage: 8 TABLETS EVERY FRIDAY
     Route: 048
     Dates: end: 202505

REACTIONS (1)
  - Psoriasis [Unknown]
